FAERS Safety Report 5698768-X (Version None)
Quarter: 2008Q2

REPORT INFORMATION
  Report Type: 
  Country: None (occurrence: None)
  Receive Date: 20080404
  Receipt Date: 20080328
  Transmission Date: 20081010
  Serious: Yes (Hospitalization)
  Sender: FDA-Public Use
  Company Number: 062-C5013-08031825

PATIENT
  Age: 78 Year
  Sex: Male

DRUGS (7)
  1. CC-50L3(LENALIDOMIDE)(CAPSULES) [Suspect]
     Indication: NON-HODGKIN'S LYMPHOMA
     Dosage: 25 MG, 1 IN 1 D, ORAL
     Route: 048
     Dates: start: 20080222
  2. CC-50L3(LENALIDOMIDE)(CAPSULES) [Suspect]
     Indication: NON-HODGKIN'S LYMPHOMA
     Dosage: 25 MG, 1 IN 1 D, ORAL
     Route: 048
     Dates: start: 20080324
  3. DIGITOXIN TAB [Concomitant]
  4. ZOPLICON (ZOPICLONE) [Concomitant]
  5. FONDAPARINUX (FONDAPARINUX) [Concomitant]
  6. HYDROCHLOROTHIAZIDE [Concomitant]
  7. POTASSIUM (POTASSIUM) [Concomitant]

REACTIONS (8)
  - DECREASED APPETITE [None]
  - DYSPNOEA [None]
  - GENERAL PHYSICAL HEALTH DETERIORATION [None]
  - HODGKIN'S DISEASE RECURRENT [None]
  - MALIGNANT PLEURAL EFFUSION [None]
  - ORAL FUNGAL INFECTION [None]
  - ORAL PAIN [None]
  - PERICARDIAL EFFUSION MALIGNANT [None]
